FAERS Safety Report 17096335 (Version 1)
Quarter: 2019Q4

REPORT INFORMATION
  Report Type: Spontaneous
  Country: US (occurrence: US)
  Receive Date: 20191202
  Receipt Date: 20191202
  Transmission Date: 20200122
  Serious: Yes (Other)
  Sender: FDA-Public Use
  Company Number: US-BRISTOL-MYERS SQUIBB COMPANY-BMS-2019-113641

PATIENT
  Sex: Female
  Weight: 63.5 kg

DRUGS (12)
  1. GARLIC [ALLIUM SATIVUM] [Concomitant]
     Active Substance: GARLIC
     Indication: PRODUCT USED FOR UNKNOWN INDICATION
     Dosage: 2000 MILLIGRAM, 1 PER DAY
     Route: 065
  2. PROBIOTIC [BIFIDOBACTERIUM LACTIS] [Concomitant]
     Active Substance: BIFIDOBACTERIUM ANIMALIS LACTIS
     Indication: PRODUCT USED FOR UNKNOWN INDICATION
     Dosage: UNK, 1 TABLET PER DAY
     Route: 065
  3. ELIQUIS [Suspect]
     Active Substance: APIXABAN
     Indication: CEREBROVASCULAR ACCIDENT PROPHYLAXIS
     Dosage: 5 MILLIGRAM
     Route: 065
     Dates: start: 2018
  4. ALOE CAPS [Concomitant]
     Indication: PRODUCT USED FOR UNKNOWN INDICATION
     Dosage: UNK
     Route: 065
  5. COQ 10 [Concomitant]
     Active Substance: UBIDECARENONE
     Indication: PRODUCT USED FOR UNKNOWN INDICATION
     Dosage: 300 MILLIGRAM
     Route: 065
  6. MAGNESIUM [Concomitant]
     Active Substance: MAGNESIUM
     Indication: PRODUCT USED FOR UNKNOWN INDICATION
     Dosage: 400 MILLIGRAM, 1 TABLET PER DAY
     Route: 065
  7. ELIQUIS [Suspect]
     Active Substance: APIXABAN
     Indication: PRODUCT USED FOR UNKNOWN INDICATION
     Dosage: 2.5 MILLIGRAM, BID
     Route: 048
  8. BIOTIN [Concomitant]
     Active Substance: BIOTIN
     Indication: PRODUCT USED FOR UNKNOWN INDICATION
     Dosage: 5000 MICROGRAM
     Route: 065
  9. MULTIVITAMIN ACTIVE WOMAN [Concomitant]
     Indication: PRODUCT USED FOR UNKNOWN INDICATION
     Dosage: UNK, 3 PER DAY
     Route: 065
  10. CINNAMON [CINNAMOMUM VERUM] [Concomitant]
     Indication: PRODUCT USED FOR UNKNOWN INDICATION
     Dosage: 1000 MILLIGRAM (2 CAPSULES, 1000 MG IS THE AMOUNT IN 2 CAPSULES)
     Route: 065
  11. DILTIAZEM. [Concomitant]
     Active Substance: DILTIAZEM
     Indication: PRODUCT USED FOR UNKNOWN INDICATION
     Dosage: UNK, 1 PER DAY
     Route: 065
  12. POTASSIUM [Concomitant]
     Active Substance: POTASSIUM
     Indication: ATRIAL FIBRILLATION
     Dosage: 99 MILLIGRAM
     Route: 065

REACTIONS (7)
  - Vaginal haemorrhage [Unknown]
  - Milia [Unknown]
  - Intentional product use issue [Unknown]
  - Weight fluctuation [Unknown]
  - Rectal haemorrhage [Unknown]
  - Epistaxis [Unknown]
  - Eye disorder [Unknown]
